FAERS Safety Report 18141300 (Version 2)
Quarter: 2020Q3

REPORT INFORMATION
  Report Type: Report from Study
  Country: US (occurrence: US)
  Receive Date: 20200812
  Receipt Date: 20200828
  Transmission Date: 20201103
  Serious: No
  Sender: FDA-Public Use
  Company Number: US-AGIOS-2007US02065

PATIENT

DRUGS (1)
  1. TIBSOVO [Suspect]
     Active Substance: IVOSIDENIB
     Indication: ACUTE MYELOID LEUKAEMIA
     Dosage: 250 MG, 2 TABLETS (500 MG), DAILY
     Route: 048
     Dates: start: 20200330

REACTIONS (4)
  - Fatigue [Unknown]
  - Blood count abnormal [Unknown]
  - Diarrhoea [Unknown]
  - Constipation [Unknown]
